FAERS Safety Report 8156128-6 (Version None)
Quarter: 2012Q1

REPORT INFORMATION
  Report Type: 
  Country: None (occurrence: None)
  Receive Date: 20120221
  Receipt Date: 20120221
  Transmission Date: 20120608
  Serious: No
  Sender: FDA-Public Use
  Company Number: None

PATIENT
  Sex: Female

DRUGS (2)
  1. FLUOXETINE [Suspect]
     Indication: POST-TRAUMATIC STRESS DISORDER
     Dosage: 20MG QD ORAL  JAN TO FEB THIS TIME
     Route: 048
  2. FLUOXETINE [Suspect]
     Indication: MAJOR DEPRESSION
     Dosage: 20MG QD ORAL  JAN TO FEB THIS TIME
     Route: 048

REACTIONS (4)
  - NAUSEA [None]
  - DEPRESSED MOOD [None]
  - GASTROOESOPHAGEAL REFLUX DISEASE [None]
  - PRODUCT SUBSTITUTION ISSUE [None]
